FAERS Safety Report 10350828 (Version 1)
Quarter: 2014Q3

REPORT INFORMATION
  Report Type: Spontaneous
  Country: US (occurrence: US)
  Receive Date: 20140730
  Receipt Date: 20140730
  Transmission Date: 20150326
  Serious: No
  Sender: FDA-Public Use
  Company Number: US-BRISTOL-MYERS SQUIBB COMPANY-20825824

PATIENT
  Age: 61 Year
  Sex: Female
  Weight: 90.7 kg

DRUGS (8)
  1. VITAMINS [Concomitant]
     Active Substance: VITAMINS
  2. FARXIGA [Suspect]
     Active Substance: DAPAGLIFLOZIN PROPANEDIOL
     Dosage: STARTED WITH 5MG,INCREASED TO 10 MG.
     Dates: start: 20140506
  3. METFORMIN HCL [Suspect]
     Active Substance: METFORMIN HYDROCHLORIDE
  4. LISINOPRIL. [Concomitant]
     Active Substance: LISINOPRIL
  5. APIDRA [Concomitant]
     Active Substance: INSULIN GLULISINE
  6. VICTOZA [Concomitant]
     Active Substance: LIRAGLUTIDE
  7. LEVEMIR [Concomitant]
     Active Substance: INSULIN DETEMIR
  8. PAXIL [Concomitant]
     Active Substance: PAROXETINE HYDROCHLORIDE

REACTIONS (6)
  - Vision blurred [Unknown]
  - Dizziness [Unknown]
  - Nervousness [Unknown]
  - Pollakiuria [Unknown]
  - Migraine [Unknown]
  - Weight decreased [Unknown]
